FAERS Safety Report 8481177-8 (Version None)
Quarter: 2012Q3

REPORT INFORMATION
  Report Type: 
  Country: None (occurrence: None)
  Receive Date: 20120702
  Receipt Date: 20120625
  Transmission Date: 20120928
  Serious: Yes (Other)
  Sender: FDA-Public Use
  Company Number: PHHY2012BR045365

PATIENT
  Age: 48 Year
  Sex: Female

DRUGS (1)
  1. METHERGINE [Suspect]
     Indication: MENORRHAGIA
     Dosage: 0.125 MG, ONLY USED 3 CAPSULES
     Dates: start: 20120524

REACTIONS (1)
  - MENORRHAGIA [None]
